FAERS Safety Report 10312841 (Version 1)
Quarter: 2014Q3

REPORT INFORMATION
  Report Type: Spontaneous
  Country: US (occurrence: None)
  Receive Date: 20140717
  Receipt Date: 20140717
  Transmission Date: 20150326
  Serious: Yes (Other)
  Sender: FDA-Public Use
  Company Number: None

PATIENT
  Age: 45 Year
  Sex: Male
  Weight: 72 kg

DRUGS (2)
  1. DIETARY SUPPLEMENT [Suspect]
     Active Substance: DIETARY SUPPLEMENT
     Indication: PROPHYLAXIS
  2. DIETARY SUPPLEMENT [Suspect]
     Active Substance: DIETARY SUPPLEMENT
     Indication: IMMUNE SYSTEM DISORDER

REACTIONS (5)
  - Drug ineffective [None]
  - Fatigue [None]
  - Argyria [None]
  - Toxicity to various agents [None]
  - Headache [None]

NARRATIVE: CASE EVENT DATE: 20110207
